FAERS Safety Report 16081256 (Version 5)
Quarter: 2019Q2

REPORT INFORMATION
  Report Type: Spontaneous
  Country: AU (occurrence: AU)
  Receive Date: 20190316
  Receipt Date: 20190415
  Transmission Date: 20190711
  Serious: Yes (Other)
  Sender: FDA-Public Use
  Company Number: AU-ACCORD-113623

PATIENT
  Age: 36 Year
  Sex: Male
  Weight: 120 kg

DRUGS (7)
  1. PANTOPRAZOLE [Suspect]
     Active Substance: PANTOPRAZOLE
     Indication: PRODUCT USED FOR UNKNOWN INDICATION
     Dosage: IN EVENING
  2. CLONAZEPAM. [Suspect]
     Active Substance: CLONAZEPAM
     Indication: PRODUCT USED FOR UNKNOWN INDICATION
     Dosage: IN EVENING
  3. CLOZARIL [Suspect]
     Active Substance: CLOZAPINE
     Indication: SCHIZOPHRENIA
     Route: 048
     Dates: start: 19980824, end: 20180214
  4. PALIPERIDONE/PALIPERIDONE PALMITATE [Suspect]
     Active Substance: PALIPERIDONE
     Indication: PRODUCT USED FOR UNKNOWN INDICATION
  5. VALPROIC ACID. [Suspect]
     Active Substance: VALPROIC ACID
     Indication: PRODUCT USED FOR UNKNOWN INDICATION
     Dosage: FREQUENCY 2 TIMES A DAY
  6. ATORVASTATIN/ATORVASTATIN CALCIUM [Suspect]
     Active Substance: ATORVASTATIN CALCIUM
     Indication: PRODUCT USED FOR UNKNOWN INDICATION
     Dosage: IN EVENING
  7. QUETIAPINE. [Suspect]
     Active Substance: QUETIAPINE
     Indication: PRODUCT USED FOR UNKNOWN INDICATION
     Dosage: FREQUENCY : 2 TIMES A DAY

REACTIONS (12)
  - Anion gap increased [Unknown]
  - Blood sodium decreased [Unknown]
  - Blood osmolarity decreased [Unknown]
  - Blood bicarbonate decreased [Unknown]
  - Troponin increased [Recovered/Resolved]
  - Myelocyte count increased [Unknown]
  - Gamma-glutamyltransferase increased [Not Recovered/Not Resolved]
  - C-reactive protein increased [Unknown]
  - Protein total increased [Unknown]
  - Metamyelocyte count increased [Unknown]
  - Blast cell count increased [Unknown]
  - Mental impairment [Unknown]

NARRATIVE: CASE EVENT DATE: 20190205
